FAERS Safety Report 15056798 (Version 1)
Quarter: 2018Q2

REPORT INFORMATION
  Report Type: Spontaneous
  Country: US (occurrence: US)
  Receive Date: 20180604
  Receipt Date: 20180604
  Transmission Date: 20180711
  Serious: Yes (Other)
  Sender: FDA-Public Use
  Company Number: None

PATIENT
  Age: 39 Year
  Sex: Male
  Weight: 112.04 kg

DRUGS (2)
  1. OMNIPAQUE [Suspect]
     Active Substance: IOHEXOL
     Indication: LARYNGEAL OEDEMA
     Route: 042
  2. OMNIPAQUE [Suspect]
     Active Substance: IOHEXOL
     Indication: DYSPHAGIA
     Route: 042
     Dates: start: 20180505

REACTIONS (4)
  - Lip swelling [None]
  - Swelling face [None]
  - Urticaria [None]
  - Pharyngeal oedema [None]

NARRATIVE: CASE EVENT DATE: 20180515
